FAERS Safety Report 7350830-1 (Version None)
Quarter: 2011Q1

REPORT INFORMATION
  Report Type: 
  Country: None (occurrence: None)
  Receive Date: 20110314
  Receipt Date: 20110304
  Transmission Date: 20110831
  Serious: Yes (Hospitalization)
  Sender: FDA-Public Use
  Company Number: US-JNJFOC-20110304991

PATIENT
  Sex: Male

DRUGS (9)
  1. METOPROLOL TARTRATE [Concomitant]
     Indication: ILL-DEFINED DISORDER
  2. BIVALIRUDIN [Suspect]
     Route: 042
  3. LISINOPRIL [Concomitant]
     Indication: ILL-DEFINED DISORDER
  4. ACETYLSALICYLIC ACID [Concomitant]
     Indication: ILL-DEFINED DISORDER
  5. ABCIXIMAB [Suspect]
     Indication: MYOCARDIAL INFARCTION
     Route: 022
  6. ATORVASTATIN [Concomitant]
     Indication: ILL-DEFINED DISORDER
  7. BIVALIRUDIN [Suspect]
     Indication: MYOCARDIAL INFARCTION
     Route: 042
  8. NITROGLYCERIN [Concomitant]
     Indication: ILL-DEFINED DISORDER
  9. CLOPIDOGREL [Concomitant]
     Indication: ILL-DEFINED DISORDER

REACTIONS (1)
  - PERICARDIAL EFFUSION [None]
